FAERS Safety Report 21022071 (Version 1)
Quarter: 2022Q2

REPORT INFORMATION
  Report Type: Spontaneous
  Country: US (occurrence: None)
  Receive Date: 20220628
  Receipt Date: 20220628
  Transmission Date: 20220720
  Serious: Yes (Hospitalization)
  Sender: FDA-Public Use
  Company Number: None

PATIENT
  Sex: Male

DRUGS (16)
  1. HUMIRA [Suspect]
     Active Substance: ADALIMUMAB
     Indication: Rheumatoid arthritis
     Dosage: OTHER FREQUENCY : 40 MG/0.4ML;?
     Route: 058
     Dates: start: 20210320
  2. ALBUTEROL [Concomitant]
  3. ALFUZOSIN [Concomitant]
     Active Substance: ALFUZOSIN
  4. BREO ELLIPTA [Concomitant]
  5. CHLORHEX GLU [Concomitant]
  6. DEXAMETH PHO [Concomitant]
  7. FOLIC ACID [Concomitant]
     Active Substance: FOLIC ACID
  8. HUMIRA [Concomitant]
     Active Substance: ADALIMUMAB
  9. ACETAMINOPHEN\HYDROCODONE [Concomitant]
     Active Substance: ACETAMINOPHEN\HYDROCODONE
  10. HYDROXYCHLOROQUINE [Concomitant]
     Active Substance: HYDROXYCHLOROQUINE
  11. LANSOPRAZOLE [Concomitant]
     Active Substance: LANSOPRAZOLE
  12. METHOTREXATE [Concomitant]
  13. METHYLPRED [Concomitant]
  14. PREDNISONE [Concomitant]
     Active Substance: PREDNISONE
  15. QVAR REDIHAL [Concomitant]
  16. TADALAFIL [Concomitant]

REACTIONS (3)
  - Obstruction [None]
  - Sinusitis [None]
  - Pain [None]
